FAERS Safety Report 8801312 (Version 4)
Quarter: 2013Q4

REPORT INFORMATION
  Report Type: Spontaneous
  Country: FR (occurrence: FR)
  Receive Date: 20120921
  Receipt Date: 20131001
  Transmission Date: 20140711
  Serious: Yes (Hospitalization, Other)
  Sender: FDA-Public Use
  Company Number: FR-UCBSA-066288

PATIENT
  Age: 52 Year
  Sex: Female
  Weight: 65 kg

DRUGS (6)
  1. CIMZIA [Suspect]
     Indication: RHEUMATOID ARTHRITIS
     Route: 058
     Dates: start: 20120509, end: 20120912
  2. HYTACAND [Suspect]
     Indication: HYPERTENSION
     Dosage: DAILY DOSE :16 MG
     Route: 048
     Dates: start: 201203, end: 201207
  3. ARAVA [Concomitant]
     Indication: RHEUMATOID ARTHRITIS
     Dosage: DAILY DOSE:20 MG
     Dates: start: 201110, end: 201207
  4. ARAVA [Concomitant]
     Indication: RHEUMATOID ARTHRITIS
     Dosage: REDUCED DOSE
     Dates: start: 201207
  5. CRESTOR [Concomitant]
     Indication: DYSLIPIDAEMIA
     Dosage: ONE UNIT DAILY
     Route: 048
  6. CORTANCYL [Concomitant]
     Indication: RHEUMATOID ARTHRITIS
     Dosage: DAILY DOSE: 7 MG
     Route: 048

REACTIONS (3)
  - Lupus-like syndrome [Recovered/Resolved]
  - Toxic skin eruption [Not Recovered/Not Resolved]
  - Photosensitivity reaction [Not Recovered/Not Resolved]
